FAERS Safety Report 10404872 (Version 2)
Quarter: 2014Q3

REPORT INFORMATION
  Report Type: Spontaneous
  Country: VN (occurrence: VN)
  Receive Date: 20140825
  Receipt Date: 20140903
  Transmission Date: 20150326
  Serious: Yes (Death)
  Sender: FDA-Public Use
  Company Number: VN-AMGEN-VNMSP2014064152

PATIENT
  Sex: Female

DRUGS (5)
  1. VINCRISTINE [Suspect]
     Active Substance: VINCRISTINE
     Indication: LYMPHOMA
     Dosage: 70% DOSAGE IN 1ST CYCLE, 100% DOSAGE IN 2ND CYCLE
     Route: 065
     Dates: end: 20140728
  2. NEULASTIM [Suspect]
     Active Substance: PEGFILGRASTIM
     Indication: PROPHYLAXIS
     Dosage: UNK
     Route: 065
     Dates: start: 20140729, end: 20140729
  3. HYDROXYDAUNORUBICIN [Suspect]
     Active Substance: DOXORUBICIN
     Indication: LYMPHOMA
     Dosage: 70% DOSAGE IN 1ST CYCLE, 100% DOSAGE IN 2ND CYCLE
     Route: 065
     Dates: end: 20140728
  4. PREDNISONE. [Suspect]
     Active Substance: PREDNISONE
     Indication: LYMPHOMA
     Dosage: 70% DOSAGE IN 1ST CYCLE, 100% DOSAGE IN 2ND CYCLE
     Route: 065
     Dates: end: 20140728
  5. CYCLOPHOSPHAMIDE. [Suspect]
     Active Substance: CYCLOPHOSPHAMIDE
     Indication: LYMPHOMA
     Dosage: 70% DOSAGE IN 1ST CYCLE, 100% DOSAGE IN 2ND CYCLE
     Route: 065
     Dates: end: 20140728

REACTIONS (1)
  - Death [Fatal]
